FAERS Safety Report 6095957-X (Version None)
Quarter: 2009Q1

REPORT INFORMATION
  Report Type: 
  Country: None (occurrence: None)
  Receive Date: 20090227
  Receipt Date: 20080723
  Transmission Date: 20090719
  Serious: No
  Sender: FDA-Public Use
  Company Number: A0739111A

PATIENT
  Age: 47 Year
  Sex: Female

DRUGS (9)
  1. LAMICTAL [Suspect]
     Dosage: 100MG TWICE PER DAY
     Route: 048
     Dates: start: 20080610
  2. NEURONTIN [Concomitant]
  3. BENICAR [Concomitant]
  4. LIPITOR [Concomitant]
  5. LEVOTHYROXINE SODIUM [Concomitant]
  6. CELEBREX [Concomitant]
  7. CLONIDINE [Concomitant]
  8. CYMBALTA [Concomitant]
  9. IMODIUM [Concomitant]

REACTIONS (2)
  - ABDOMINAL PAIN UPPER [None]
  - DIARRHOEA [None]
